FAERS Safety Report 6728639-9 (Version None)
Quarter: 2010Q2

REPORT INFORMATION
  Report Type: 
  Country: None (occurrence: None)
  Receive Date: 20100517
  Receipt Date: 20100511
  Transmission Date: 20101027
  Serious: Yes (Hospitalization)
  Sender: FDA-Public Use
  Company Number: BR-ABBOTT-09P-020-0613955-00

PATIENT
  Sex: Female
  Weight: 56 kg

DRUGS (11)
  1. HUMIRA [Suspect]
     Indication: CROHN'S DISEASE
     Route: 058
     Dates: start: 20080101
  2. HUMIRA [Suspect]
  3. PENTASA [Concomitant]
     Indication: CROHN'S DISEASE
     Dosage: 500 MG X 8 QD
     Route: 048
  4. VITAMIN E [Concomitant]
     Indication: CROHN'S DISEASE
     Route: 048
  5. VITAMIN C [Concomitant]
     Indication: CROHN'S DISEASE
     Route: 048
  6. LOVAZA [Concomitant]
     Indication: ANTIINFLAMMATORY THERAPY
     Route: 048
  7. SELENIUM [Concomitant]
     Indication: VITAMIN SUPPLEMENTATION
     Route: 048
  8. ZINC [Concomitant]
     Indication: CROHN'S DISEASE
     Route: 048
  9. AZATHIOPRINE [Concomitant]
     Indication: IMMUNE SYSTEM DISORDER
     Route: 048
  10. CALCIUM [Concomitant]
     Indication: CROHN'S DISEASE
     Route: 048
  11. MAGNESIUM [Concomitant]
     Indication: CROHN'S DISEASE

REACTIONS (8)
  - BLEPHAROPACHYNSIS [None]
  - CROHN'S DISEASE [None]
  - EYE INFLAMMATION [None]
  - FISTULA [None]
  - IMMUNODEFICIENCY [None]
  - INFECTION [None]
  - INTESTINAL FISTULA [None]
  - PURULENT DISCHARGE [None]
